FAERS Safety Report 23917045 (Version 1)
Quarter: 2024Q2

REPORT INFORMATION
  Report Type: Spontaneous
  Country: US (occurrence: US)
  Receive Date: 20240529
  Receipt Date: 20240529
  Transmission Date: 20240716
  Serious: No
  Sender: FDA-Public Use
  Company Number: US-PERRIGO-24US003757

PATIENT
  Age: 53 Year
  Sex: Male
  Weight: 87.528 kg

DRUGS (2)
  1. MINOXIDIL [Suspect]
     Active Substance: MINOXIDIL
     Indication: Alopecia
     Dosage: 1/2 CAPFUL, BID
     Route: 061
     Dates: start: 20240411, end: 20240414
  2. FINASTERIDE [Concomitant]
     Active Substance: FINASTERIDE
     Indication: Alopecia
     Dosage: 2MG
     Route: 065

REACTIONS (5)
  - Hypersensitivity [Recovering/Resolving]
  - Application site paraesthesia [Recovered/Resolved]
  - Application site inflammation [Recovering/Resolving]
  - Application site scab [Recovering/Resolving]
  - Application site pruritus [Recovered/Resolved]

NARRATIVE: CASE EVENT DATE: 20240413
